FAERS Safety Report 11783717 (Version 2)
Quarter: 2016Q1

REPORT INFORMATION
  Report Type: Spontaneous
  Country: IT (occurrence: IT)
  Receive Date: 20151127
  Receipt Date: 20160104
  Transmission Date: 20160525
  Serious: Yes (Other)
  Sender: FDA-Public Use
  Company Number: IT-CELGENE-ITA-2015113663

PATIENT
  Age: 78 Year
  Sex: Female

DRUGS (4)
  1. ABRAXANE [Suspect]
     Active Substance: PACLITAXEL
     Indication: PANCREATIC CARCINOMA
     Dosage: 230 MG
     Route: 041
     Dates: start: 20150924, end: 20151022
  2. ABRAXANE [Suspect]
     Active Substance: PACLITAXEL
     Dosage: DOSE REDUCED
     Route: 041
     Dates: start: 20151029
  3. GEMSOL [Suspect]
     Active Substance: GEMCITABINE HYDROCHLORIDE
     Indication: PANCREATIC CARCINOMA
     Dosage: 1860 MG
     Route: 041
     Dates: start: 20150924, end: 20151022
  4. GEMSOL [Suspect]
     Active Substance: GEMCITABINE HYDROCHLORIDE
     Dosage: DOSE REDUCED
     Route: 041
     Dates: start: 20151029

REACTIONS (1)
  - Hepatitis [Recovering/Resolving]

NARRATIVE: CASE EVENT DATE: 20151021
